FAERS Safety Report 5846409-0 (Version None)
Quarter: 2008Q3

REPORT INFORMATION
  Report Type: 
  Country: None (occurrence: None)
  Receive Date: 20080815
  Receipt Date: 20080808
  Transmission Date: 20090109
  Serious: Yes (Other)
  Sender: FDA-Public Use
  Company Number: DE-ALLERGAN-0808169US

PATIENT
  Age: 26 Year
  Sex: Female
  Weight: 99 kg

DRUGS (4)
  1. BOTOX [Suspect]
     Indication: HEREDITARY SPASTIC PARAPLEGIA
     Dosage: 300 UNITS, SINGLE
     Route: 030
     Dates: start: 20060201, end: 20060201
  2. BOTOX [Suspect]
     Dosage: 200 UNITS, SINGLE
     Route: 030
     Dates: start: 20051101, end: 20051101
  3. MYDOCALM [Concomitant]
     Indication: MUSCLE SPASTICITY
     Dosage: 25 MG, QD
     Route: 048
  4. LIORESAL [Concomitant]
     Indication: MUSCLE SPASTICITY

REACTIONS (2)
  - DYSSTASIA [None]
  - MUSCULAR WEAKNESS [None]
